FAERS Safety Report 8888899 (Version 1)
Quarter: 2012Q4

REPORT INFORMATION
  Report Type: 
  Country: US (occurrence: US)
  Receive Date: 20121106
  Receipt Date: 20121106
  Transmission Date: 20130627
  Serious: Yes (Other)
  Sender: FDA-Public Use
  Company Number: US-ASTRAZENECA-2011SE70123

PATIENT
  Age: 70 Year
  Sex: Female
  Weight: 67.6 kg

DRUGS (9)
  1. CRESTOR [Suspect]
     Indication: BLOOD CHOLESTEROL INCREASED
     Route: 048
  2. CRESTOR [Suspect]
     Indication: BLOOD CHOLESTEROL INCREASED
     Dosage: THREE TIMES WEEKLY
     Route: 048
  3. ACTONEL [Concomitant]
  4. PANTOPRAZOLE [Concomitant]
  5. LORAZEPAM [Concomitant]
  6. COENZYME Q10 [Concomitant]
  7. VITAMIN C [Concomitant]
  8. VITAMIN D [Concomitant]
  9. VITAMIN B12 [Concomitant]

REACTIONS (5)
  - Myalgia [Recovering/Resolving]
  - Oropharyngeal pain [Unknown]
  - Upper respiratory tract infection [Unknown]
  - Headache [Unknown]
  - Pain in extremity [Unknown]
